FAERS Safety Report 7706244-5 (Version None)
Quarter: 2011Q3

REPORT INFORMATION
  Report Type: 
  Country: None (occurrence: None)
  Receive Date: 20110824
  Receipt Date: 20110815
  Transmission Date: 20111222
  Serious: Yes (Death)
  Sender: FDA-Public Use
  Company Number: BR-ROCHE-722373

PATIENT
  Sex: Male
  Weight: 61.6 kg

DRUGS (3)
  1. PEGINTERFERON ALFA-2A [Suspect]
     Dosage: LAST DOSE PRIOR TO SAE: 10 AUG 2010.
     Route: 058
     Dates: start: 20090929
  2. RIBAVIRIN [Suspect]
     Dosage: FREQUENCY: QD, LAST DOSE: 14 AUG 2010
     Route: 048
     Dates: start: 20090929
  3. INSULIN [Concomitant]
     Dosage: TDD: 40 U
     Dates: start: 20050101

REACTIONS (2)
  - THROMBOCYTOPENIA [None]
  - CEREBROVASCULAR ACCIDENT [None]
